FAERS Safety Report 24157443 (Version 3)
Quarter: 2024Q3

REPORT INFORMATION
  Report Type: Spontaneous
  Country: ES (occurrence: ES)
  Receive Date: 20240731
  Receipt Date: 20240826
  Transmission Date: 20241016
  Serious: Yes (Other)
  Sender: CHIESI
  Company Number: ES-CHIESI-2024CHF04584

PATIENT
  Age: 0 Year
  Sex: Female

DRUGS (1)
  1. CUROSURF [Suspect]
     Active Substance: PORACTANT ALFA
     Indication: Product used for unknown indication
     Dosage: 180 MILLIGRAM
     Route: 007
     Dates: start: 20240719

REACTIONS (2)
  - Dyspnoea [Recovering/Resolving]
  - Product complaint [Recovered/Resolved]

NARRATIVE: CASE EVENT DATE: 20240719
